FAERS Safety Report 7637617-7 (Version None)
Quarter: 2011Q3

REPORT INFORMATION
  Report Type: 
  Country: None (occurrence: None)
  Receive Date: 20110726
  Receipt Date: 20110718
  Transmission Date: 20111222
  Serious: Yes (Other)
  Sender: FDA-Public Use
  Company Number: PHHY2011US65221

PATIENT
  Age: 91 Year
  Sex: Male
  Weight: 73 kg

DRUGS (9)
  1. LOVASTATIN [Suspect]
     Dosage: 40 MG/DAY
  2. DANAZOL [Interacting]
     Dosage: 400 MG/DAY
  3. ASPIRIN [Concomitant]
     Dosage: 81 MG/DAY
  4. CLOPIDOGREL [Concomitant]
     Dosage: 75 MG/DAY
  5. LEVOTHYROXINE SODIUM [Concomitant]
     Dosage: 50 MG/DAY
  6. GLIPIZIDE [Concomitant]
     Dosage: 5 MG/DAY
  7. ISOSORBIDE DINITRATE [Concomitant]
     Dosage: 10 MG/DAY
  8. METOPROLOL TARTRATE [Concomitant]
     Dosage: 200 MG/DAY
  9. LISINOPRIL [Concomitant]
     Dosage: 10 MG/DAY

REACTIONS (4)
  - ECCHYMOSIS [None]
  - MUSCULAR WEAKNESS [None]
  - DRUG INTERACTION [None]
  - RHABDOMYOLYSIS [None]
